FAERS Safety Report 13825355 (Version 2)
Quarter: 2017Q4

REPORT INFORMATION
  Report Type: Spontaneous
  Country: None (occurrence: NO)
  Receive Date: 20170802
  Receipt Date: 20171108
  Transmission Date: 20180320
  Serious: Yes (Hospitalization, Other)
  Sender: FDA-Public Use
  Company Number: NO-MEDAC PHARMA, INC.-2024069

PATIENT
  Age: 40 Year
  Sex: Male

DRUGS (6)
  1. STELARA [Suspect]
     Active Substance: USTEKINUMAB
     Route: 058
     Dates: start: 2010
  2. ACITRETIN. [Suspect]
     Active Substance: ACITRETIN
     Route: 065
     Dates: start: 199902, end: 199909
  3. ENBREL [Suspect]
     Active Substance: ETANERCEPT
  4. SANDIMMUNE [Suspect]
     Active Substance: CYCLOSPORINE
     Route: 065
     Dates: start: 2001, end: 2001
  5. REMICADE [Suspect]
     Active Substance: INFLIXIMAB
     Route: 042
     Dates: start: 1999
  6. METHOTREXATE SODIUM. [Suspect]
     Active Substance: METHOTREXATE SODIUM
     Indication: PSORIASIS
     Dates: start: 199802, end: 199809

REACTIONS (11)
  - Rheumatoid arthritis [Unknown]
  - Osteonecrosis [Not Recovered/Not Resolved]
  - Osteoarthritis [Unknown]
  - Sepsis [Unknown]
  - Bursitis [Unknown]
  - Volvulus [Unknown]
  - Asthma [Unknown]
  - Migraine [Unknown]
  - Drug effect decreased [Unknown]
  - Ileus [Unknown]
  - Psoriasis [Unknown]

NARRATIVE: CASE EVENT DATE: 20160212
